FAERS Safety Report 5931829-6 (Version None)
Quarter: 2008Q4

REPORT INFORMATION
  Report Type: 
  Country: None (occurrence: None)
  Receive Date: 20081022
  Receipt Date: 20081016
  Transmission Date: 20090506
  Serious: Yes (Hospitalization)
  Sender: FDA-Public Use
  Company Number: 2005-12-1071

PATIENT
  Age: 44 Year
  Sex: Male
  Weight: 56 kg

DRUGS (9)
  1. VIRAFERONPEG [Suspect]
     Indication: HEPATITIS C
     Dates: end: 20010409
  2. DISULONE (DISULONE) [Suspect]
     Indication: DRUG USE FOR UNKNOWN INDICATION
     Dosage: ; PO
     Route: 048
     Dates: end: 20010420
  3. SUSTIVA [Suspect]
     Indication: DRUG USE FOR UNKNOWN INDICATION
     Dosage: ; PO, 400 MG;
     Route: 048
     Dates: end: 20010409
  4. COMBIVIR [Suspect]
     Indication: DRUG USE FOR UNKNOWN INDICATION
     Dosage: ; PO
     Route: 048
     Dates: end: 20010409
  5. ZIFFIX (LAMIVUDINE) (NO PREF. NAME) [Suspect]
     Indication: DRUG USE FOR UNKNOWN INDICATION
     Dosage: ; PO
     Route: 048
     Dates: end: 20010417
  6. ZELITREX (VALACICLOVIR) (VALACICLOVIR) [Suspect]
     Indication: DRUG USE FOR UNKNOWN INDICATION
  7. ALDACTONE [Concomitant]
  8. EPIVIR [Concomitant]
  9. RETROVIR [Concomitant]

REACTIONS (5)
  - CYTOLYTIC HEPATITIS [None]
  - HEPATOTOXICITY [None]
  - LOBAR PNEUMONIA [None]
  - PANCREATITIS [None]
  - RENAL FAILURE [None]
